FAERS Safety Report 6043770-1 (Version None)
Quarter: 2009Q1

REPORT INFORMATION
  Report Type: 
  Country: None (occurrence: None)
  Receive Date: 20090120
  Receipt Date: 20090112
  Transmission Date: 20090719
  Serious: Yes (Other)
  Sender: FDA-Public Use
  Company Number: PHHY2009DE01282

PATIENT
  Age: 65 Year
  Sex: Male

DRUGS (1)
  1. EXELON [Suspect]
     Dosage: 4.6MG/24H
     Route: 062

REACTIONS (1)
  - PSORIASIS [None]
